FAERS Safety Report 4707673-4 (Version None)
Quarter: 2005Q3

REPORT INFORMATION
  Report Type: 
  Country: None (occurrence: None)
  Receive Date: 20050705
  Receipt Date: 20050621
  Transmission Date: 20060218
  Serious: Yes (Disabling, Other)
  Sender: FDA-Public Use
  Company Number: 2005083952

PATIENT
  Age: 47 Year
  Sex: Male
  Weight: 65 kg

DRUGS (2)
  1. NEURONTIN [Suspect]
     Indication: NEUROPATHIC PAIN
     Dosage: 800 MG (400 MG 2 IN 1 D)ORAL
     Route: 047
     Dates: start: 20050524, end: 20050602
  2. NEUROBION (CYANCOBALAMIN, PYRIDOXINE HYDROCHLORIDE, THIAMINE HYDROCHLO [Concomitant]

REACTIONS (6)
  - AMNESIA [None]
  - APATHY [None]
  - ASTHENIA [None]
  - BALANCE DISORDER [None]
  - FATIGUE [None]
  - SOMNOLENCE [None]
